FAERS Safety Report 17089572 (Version 1)
Quarter: 2019Q4

REPORT INFORMATION
  Report Type: Spontaneous
  Country: US (occurrence: US)
  Receive Date: 20191030
  Receipt Date: 20191030
  Transmission Date: 20200122
  Serious: Yes (Other)
  Sender: FDA-Public Use
  Company Number: None

PATIENT
  Age: 61 Year
  Sex: Female
  Weight: 102.06 kg

DRUGS (10)
  1. LOSARTAN HCT 100/25 GENERIC FOR HYZAAR 100/25MG [Suspect]
     Active Substance: HYDROCHLOROTHIAZIDE\LOSARTAN POTASSIUM
     Indication: HYPERTENSION
     Route: 048
     Dates: start: 20170105, end: 20190502
  2. VERAPAMIL [Concomitant]
     Active Substance: VERAPAMIL HYDROCHLORIDE
  3. LORATADINE. [Concomitant]
     Active Substance: LORATADINE
  4. FLONASE [Concomitant]
     Active Substance: FLUTICASONE PROPIONATE
  5. LIPITOR [Concomitant]
     Active Substance: ATORVASTATIN CALCIUM
  6. VITAMIN D [Concomitant]
     Active Substance: VITAMIN D NOS
  7. SYMBICORT [Concomitant]
     Active Substance: BUDESONIDE\FORMOTEROL FUMARATE DIHYDRATE
  8. LISINOPRIL. [Concomitant]
     Active Substance: LISINOPRIL
  9. EFFEXOR XR [Concomitant]
     Active Substance: VENLAFAXINE HYDROCHLORIDE
  10. NAPROXEN. [Concomitant]
     Active Substance: NAPROXEN

REACTIONS (1)
  - Anal cancer [None]

NARRATIVE: CASE EVENT DATE: 20181102
